FAERS Safety Report 25750668 (Version 2)
Quarter: 2025Q4

REPORT INFORMATION
  Report Type: Spontaneous
  Country: US (occurrence: US)
  Receive Date: 20250902
  Receipt Date: 20251003
  Transmission Date: 20260117
  Serious: No
  Sender: CELLTRION
  Company Number: US-CELLTRION INC.-2025US029814

PATIENT

DRUGS (1)
  1. VEGZELMA [Suspect]
     Active Substance: BEVACIZUMAB-ADCD
     Indication: Cervix carcinoma
     Dosage: 1000 MG EVERY 3 WEEKS
     Route: 042

REACTIONS (3)
  - Illness [Unknown]
  - Intentional dose omission [Unknown]
  - Treatment delayed [Unknown]

NARRATIVE: CASE EVENT DATE: 20250909
